FAERS Safety Report 6313806-9 (Version None)
Quarter: 2009Q3

REPORT INFORMATION
  Report Type: 
  Country: None (occurrence: None)
  Receive Date: 20090818
  Receipt Date: 20090501
  Transmission Date: 20100115
  Serious: No
  Sender: FDA-Public Use
  Company Number: US-BRISTOL-MYERS SQUIBB COMPANY-14609382

PATIENT
  Sex: Male

DRUGS (4)
  1. REYATAZ [Suspect]
  2. RITONAVIR [Suspect]
  3. TRUVADA [Concomitant]
  4. ATRIPLA [Concomitant]

REACTIONS (1)
  - ALOPECIA [None]
